FAERS Safety Report 7090989-7 (Version None)
Quarter: 2010Q4

REPORT INFORMATION
  Report Type: 
  Country: None (occurrence: None)
  Receive Date: 20101109
  Receipt Date: 20101028
  Transmission Date: 20110411
  Serious: Yes (Other)
  Sender: FDA-Public Use
  Company Number: PL-GENENTECH-309122

PATIENT
  Age: 62 Year
  Sex: Male
  Weight: 62 kg

DRUGS (9)
  1. MABTHERA [Suspect]
     Indication: PRODUCT USED FOR UNKNOWN INDICATION
     Dosage: 670 MG, UNK
     Route: 065
  2. FLUDARABINA [Suspect]
     Indication: PRODUCT USED FOR UNKNOWN INDICATION
     Dosage: 70 MG, UNK
     Route: 048
  3. DOXORUBICIN HCL [Concomitant]
     Dosage: UNK
     Route: 042
     Dates: start: 20100501
  4. PREDNISOLONE [Concomitant]
     Dosage: UNK
     Route: 042
     Dates: start: 20100501
  5. CYCLOPHOSPHAMIDE [Concomitant]
     Dosage: UNK
     Route: 042
     Dates: start: 20100501
  6. CYCLOPHOSPHAMIDE [Concomitant]
     Dosage: UNK
     Route: 042
  7. VINCRISTINE [Concomitant]
     Dosage: UNK
     Route: 042
  8. DARBEPOETIN ALFA [Concomitant]
     Dosage: 500 A?G, UNK
     Route: 058
  9. DARBEPOETIN ALFA [Concomitant]
     Dosage: UNK
     Route: 058

REACTIONS (5)
  - HYPOAESTHESIA [None]
  - INTERVERTEBRAL DISC DISORDER [None]
  - NEUTROPENIA [None]
  - PAIN IN EXTREMITY [None]
  - SOFT TISSUE DISORDER [None]
